FAERS Safety Report 16228205 (Version 1)
Quarter: 2019Q2

REPORT INFORMATION
  Report Type: Spontaneous
  Country: US (occurrence: US)
  Receive Date: 20190423
  Receipt Date: 20190423
  Transmission Date: 20190711
  Serious: Yes (Death, Hospitalization)
  Sender: FDA-Public Use
  Company Number: US-TARO PHARMACEUTICALS USA.,INC-2019SUN00176

PATIENT
  Age: 44 Year
  Sex: Female

DRUGS (1)
  1. WARFARIN [Suspect]
     Active Substance: WARFARIN
     Indication: DEEP VEIN THROMBOSIS
     Dosage: 4 MG, DAILY
     Route: 048

REACTIONS (4)
  - Infection [Fatal]
  - Skin necrosis [Fatal]
  - Anticoagulation drug level above therapeutic [Fatal]
  - Septic shock [Fatal]
